FAERS Safety Report 4586849-3 (Version None)
Quarter: 2005Q1

REPORT INFORMATION
  Report Type: 
  Country: None (occurrence: None)
  Receive Date: 20050218
  Receipt Date: 20041112
  Transmission Date: 20050727
  Serious: Yes (Hospitalization, Other)
  Sender: FDA-Public Use
  Company Number: FR-BRISTOL-MYERS SQUIBB COMPANY-12768271

PATIENT
  Age: 75 Year
  Sex: Female

DRUGS (2)
  1. GLUCOPHAGE [Suspect]
     Indication: DIABETES MELLITUS NON-INSULIN-DEPENDENT
     Dosage: INITIATED MAR-2003 BUT PATIENT DID NOT TAKE REGULARLY UNTIL THE 5 MONTHS PRIOR TO ONSET OF EVENT
     Route: 048
     Dates: end: 20041107
  2. PRAVASTATIN [Suspect]
     Indication: HYPERCHOLESTEROLAEMIA

REACTIONS (3)
  - DISEASE RECURRENCE [None]
  - HEPATIC STEATOSIS [None]
  - HEPATITIS CHOLESTATIC [None]
